FAERS Safety Report 8017561-6 (Version None)
Quarter: 2012Q1

REPORT INFORMATION
  Report Type: 
  Country: None (occurrence: None)
  Receive Date: 20120103
  Receipt Date: 20111220
  Transmission Date: 20120608
  Serious: Yes (Hospitalization, Other)
  Sender: FDA-Public Use
  Company Number: PL-RANBAXY-2011R1-51470

PATIENT
  Age: 31 Year
  Sex: Female

DRUGS (7)
  1. NELFINAVIR MESYLATE [Suspect]
     Indication: HIV INFECTION
     Dosage: UNK
     Route: 065
  2. STAVUDINE [Suspect]
     Indication: HIV INFECTION
     Dosage: UNK
     Route: 065
  3. TENOFOVIR DISOPROXIL FUMARATE [Suspect]
     Indication: HIV INFECTION
     Dosage: UNK
     Route: 065
  4. ZIDOVUDINE [Suspect]
     Indication: HIV INFECTION
     Dosage: UNK
     Route: 065
  5. SAQUINAVIR [Suspect]
     Indication: HIV INFECTION
     Dosage: UNK
     Route: 065
  6. LAMIVUDINE [Suspect]
     Indication: HIV INFECTION
     Dosage: UNK
     Route: 065
  7. LOPINAVIR/RITONAVIR [Suspect]
     Indication: HIV INFECTION
     Dosage: UNK
     Route: 065

REACTIONS (5)
  - ASTHENIA [None]
  - URINARY TRACT INFECTION [None]
  - ULCER [None]
  - OSTEOPOROSIS [None]
  - PYREXIA [None]
